FAERS Safety Report 8805949 (Version 1)
Quarter: 2012Q4

REPORT INFORMATION
  Report Type: Spontaneous
  Country: US (occurrence: None)
  Receive Date: 20120917
  Receipt Date: 20120917
  Transmission Date: 20130627
  Serious: Yes (Hospitalization)
  Sender: FDA-Public Use
  Company Number: ACO_31842_2012

PATIENT
  Age: 41 Year
  Sex: Female
  Weight: 56.5 kg

DRUGS (4)
  1. AMPYRA [Suspect]
     Route: 048
     Dates: start: 201104, end: 20120820
  2. COPAXONE (GLATIRAMER ACETATE) [Concomitant]
  3. TOVIAZ (FESOTERODINE FUMARATE) [Concomitant]
  4. CRESTOR ( ROSUVASTATIN CALCIUM) [Concomitant]

REACTIONS (1)
  - Convulsion [None]
